FAERS Safety Report 25412144 (Version 1)
Quarter: 2025Q2

REPORT INFORMATION
  Report Type: Spontaneous
  Country: US (occurrence: None)
  Receive Date: 20250602
  Receipt Date: 20250602
  Transmission Date: 20250717
  Serious: Yes (Other)
  Sender: FDA-CTU
  Company Number: None

PATIENT
  Age: 36 Year
  Sex: Male
  Weight: 92.99 kg

DRUGS (1)
  1. NEFFY [Suspect]
     Active Substance: EPINEPHRINE
     Dates: start: 20250529, end: 20250529

REACTIONS (7)
  - Anaphylactic reaction [None]
  - Eye pain [None]
  - Conjunctival hyperaemia [None]
  - Photophobia [None]
  - Vision blurred [None]
  - Corneal oedema [None]
  - Chemical burns of eye [None]

NARRATIVE: CASE EVENT DATE: 20250529
